FAERS Safety Report 23606055 (Version 2)
Quarter: 2024Q4

REPORT INFORMATION
  Report Type: Spontaneous
  Country: US (occurrence: US)
  Receive Date: 20240307
  Receipt Date: 20241202
  Transmission Date: 20250114
  Serious: No
  Sender: BAYER HEALTHCARE PHARMACEUTICALS INC.
  Company Number: US-BAYER-2024A028809

PATIENT
  Age: 25 Year
  Sex: Female

DRUGS (1)
  1. MIRENA [Suspect]
     Active Substance: LEVONORGESTREL
     Indication: Contraception
     Dosage: 20?G/DAY
     Route: 015
     Dates: start: 20231221, end: 20231221

REACTIONS (3)
  - Procedural anxiety [Recovered/Resolved]
  - Complication of device insertion [None]
  - Anxiety [Recovered/Resolved]

NARRATIVE: CASE EVENT DATE: 20231221
